FAERS Safety Report 21829601 (Version 1)
Quarter: 2023Q1

REPORT INFORMATION
  Report Type: Spontaneous
  Country: AU (occurrence: AU)
  Receive Date: 20230106
  Receipt Date: 20230106
  Transmission Date: 20230418
  Serious: No
  Sender: FDA-Public Use
  Company Number: AU-PADAGIS-2022PAD01224

PATIENT

DRUGS (2)
  1. CLOBETASOL PROPIONATE [Suspect]
     Active Substance: CLOBETASOL PROPIONATE
     Indication: Erythema nodosum
     Dosage: UNK
     Route: 061
  2. COLCHICINE [Concomitant]
     Active Substance: COLCHICINE
     Indication: Erythema nodosum
     Dosage: 500 MCG BID
     Route: 048

REACTIONS (1)
  - Therapy partial responder [Unknown]
